FAERS Safety Report 6384005-X (Version None)
Quarter: 2009Q4

REPORT INFORMATION
  Report Type: 
  Country: None (occurrence: None)
  Receive Date: 20091001
  Receipt Date: 20090919
  Transmission Date: 20100525
  Serious: Yes (Hospitalization)
  Sender: FDA-Public Use
  Company Number: US-PFIZER INC-2009252091

PATIENT
  Sex: Female
  Weight: 86 kg

DRUGS (19)
  1. SILDENAFIL CITRATE [Suspect]
     Indication: PULMONARY HYPERTENSION
     Dosage: 20 MG, 3X/DAY
     Route: 048
     Dates: start: 20080925, end: 20081104
  2. SILDENAFIL CITRATE [Suspect]
     Dosage: 40 MG, 3X/DAY
     Route: 048
     Dates: start: 20081104, end: 20081211
  3. SILDENAFIL CITRATE [Suspect]
     Dosage: 80 MG, 3X/DAY
     Route: 048
     Dates: start: 20081211, end: 20090205
  4. SILDENAFIL CITRATE [Suspect]
     Dosage: 20 MG, 3X/DAY
     Route: 048
     Dates: start: 20090205, end: 20090517
  5. SILDENAFIL CITRATE [Suspect]
     Dosage: 40 MG, 3X/DAY
     Route: 048
     Dates: start: 20090519, end: 20090625
  6. SILDENAFIL CITRATE [Suspect]
     Dosage: 80 MG, 3X/DAY
     Route: 048
     Dates: start: 20090626, end: 20090731
  7. SILDENAFIL CITRATE [Suspect]
     Dosage: 40 MG, 3X/DAY
     Route: 048
     Dates: start: 20090731, end: 20090801
  8. SILDENAFIL CITRATE [Suspect]
     Dosage: 40 MG, 2X/DAY
     Route: 048
     Dates: start: 20090802, end: 20090803
  9. SILDENAFIL CITRATE [Suspect]
     Dosage: 40 MG, 1X/DAY
     Route: 048
     Dates: start: 20090804, end: 20090805
  10. HYDROXYUREA [Suspect]
     Indication: SICKLE CELL ANAEMIA
     Dosage: 2500 MG, 1X/DAY
     Route: 048
     Dates: start: 20070627, end: 20090707
  11. HYDROXYUREA [Suspect]
     Dosage: 1500 MG, 1X/DAY
     Dates: start: 20090804
  12. OXYCODONE [Concomitant]
     Indication: PAIN
     Dosage: 15 MG, PRN
     Route: 048
  13. OXYCONTIN [Concomitant]
     Indication: PAIN
     Dosage: 100 MG, 1X/DAY
     Route: 048
     Dates: start: 20090302
  14. LASIX [Concomitant]
     Indication: OEDEMA
     Dosage: 20 MG, AS NEEDED
     Route: 048
     Dates: start: 20071004
  15. LISINOPRIL [Concomitant]
     Indication: BLOOD PRESSURE
     Dosage: 10 MG, 1X/DAY
     Route: 048
  16. HYDROCHLOROTHIAZIDE [Concomitant]
     Indication: HYPERTENSION
     Dosage: 25 MG, AS NEEDED
     Route: 048
     Dates: start: 20061016
  17. FOLIC ACID [Concomitant]
     Indication: SICKLE CELL ANAEMIA
     Dosage: 1 MG, 1X/DAY
     Route: 048
  18. SENOKOT [Concomitant]
     Indication: CONSTIPATION
     Dosage: 2 TABLETS AT BEDTIME
     Route: 048
     Dates: start: 20071205
  19. DEFERASIROX [Concomitant]
     Indication: IRON OVERLOAD
     Dosage: 2500 MG, 1X/DAY
     Route: 048
     Dates: start: 20080630

REACTIONS (1)
  - PANCYTOPENIA [None]
